FAERS Safety Report 6148001-X (Version None)
Quarter: 2009Q2

REPORT INFORMATION
  Report Type: 
  Country: None (occurrence: None)
  Receive Date: 20090408
  Receipt Date: 20090129
  Transmission Date: 20091009
  Serious: No
  Sender: FDA-Public Use
  Company Number: US-BAYER-200912485NA

PATIENT
  Age: 34 Year
  Sex: Female

DRUGS (1)
  1. MIRENA [Suspect]
     Indication: CONTRACEPTION
     Route: 015
     Dates: start: 20080601

REACTIONS (15)
  - ABDOMINAL DISTENSION [None]
  - ABDOMINAL PAIN LOWER [None]
  - ABDOMINAL TENDERNESS [None]
  - ACNE [None]
  - ALOPECIA [None]
  - BREAST TENDERNESS [None]
  - FATIGUE [None]
  - INSOMNIA [None]
  - IRRITABILITY [None]
  - MEMORY IMPAIRMENT [None]
  - MENORRHAGIA [None]
  - METRORRHAGIA [None]
  - MOOD ALTERED [None]
  - PELVIC PAIN [None]
  - WEIGHT INCREASED [None]
